FAERS Safety Report 7913371-6 (Version None)
Quarter: 2011Q4

REPORT INFORMATION
  Report Type: 
  Country: None (occurrence: None)
  Receive Date: 20111114
  Receipt Date: 20111103
  Transmission Date: 20120403
  Serious: Yes (Life-Threatening)
  Sender: FDA-Public Use
  Company Number: FR-ASTRAZENECA-2011SE66362

PATIENT
  Age: 8931 Day
  Sex: Female

DRUGS (14)
  1. PIPERACILLIN AND TAZOBACTAM [Suspect]
     Indication: PYREXIA
     Route: 042
     Dates: start: 20110825, end: 20110904
  2. GANCICLOVIR SODIUM [Suspect]
     Route: 042
     Dates: start: 20110830, end: 20110916
  3. AMIKACIN [Suspect]
     Indication: PYREXIA
     Route: 042
     Dates: start: 20110825, end: 20110828
  4. TIENAM [Suspect]
     Route: 042
     Dates: start: 20111002
  5. FOSCAVIR [Suspect]
     Indication: CYTOMEGALOVIRUS INFECTION
     Route: 042
     Dates: start: 20110903, end: 20110909
  6. VANCOMYCIN HCL [Suspect]
     Indication: PYREXIA
     Route: 042
     Dates: start: 20110909, end: 20110913
  7. TIENAM [Suspect]
     Indication: PYREXIA
     Route: 042
     Dates: start: 20110909, end: 20110918
  8. AMIKACIN [Suspect]
     Route: 042
     Dates: start: 20110909
  9. CANCIDAS [Concomitant]
     Indication: CANDIDIASIS
     Route: 042
     Dates: start: 20110829, end: 20110906
  10. CANCIDAS [Concomitant]
     Route: 042
     Dates: start: 20110920
  11. IMURAN [Concomitant]
     Indication: CROHN'S DISEASE
     Dates: start: 20110201, end: 20110825
  12. FOSCAVIR [Suspect]
     Route: 042
     Dates: start: 20110930
  13. PIPERACILLIN AND TAZOBACTAM [Suspect]
     Route: 042
     Dates: end: 20111002
  14. GANCICLOVIR SODIUM [Suspect]
     Indication: CYTOMEGALOVIRUS INFECTION
     Route: 042

REACTIONS (7)
  - PANCYTOPENIA [None]
  - CYTOLYTIC HEPATITIS [None]
  - DIARRHOEA [None]
  - SEPTIC SHOCK [None]
  - HEPATIC FUNCTION ABNORMAL [None]
  - HAEMORRHAGE [None]
  - ACUTE RESPIRATORY DISTRESS SYNDROME [None]
